FAERS Safety Report 8111491-7 (Version None)
Quarter: 2012Q1

REPORT INFORMATION
  Report Type: 
  Country: None (occurrence: None)
  Receive Date: 20120203
  Receipt Date: 20120124
  Transmission Date: 20120608
  Serious: Yes (Hospitalization)
  Sender: FDA-Public Use
  Company Number: FR-BRISTOL-MYERS SQUIBB COMPANY-16371361

PATIENT
  Age: 96 Year
  Sex: Female

DRUGS (9)
  1. NEXIUM [Concomitant]
     Dosage: 1 DF: 1 TABS/DAY IN MOR AND EVE INEXIUM 20 MG, ENTERIC COATED TABLET
     Route: 048
  2. IRBESARTAN AND HYDROCHLOROTHIAZIDE [Suspect]
     Dosage: 1DF=1 TABLET IN THE MORNING
     Route: 048
     Dates: end: 20110107
  3. LERCANIDIPINE [Concomitant]
     Dosage: 1 DF:1 TABS/DAY IN EVE LERCAN 10MG FILM COATED SCORE TABS
     Route: 048
  4. TROSPIUM CHLORIDE [Concomitant]
     Dosage: 1 DF: 1 TABS IN THE MOR AND EVE FORMULATION:CERIS 20 MG, COATED TABLET
     Route: 048
  5. BECLOMETHASONE DIPROPIONATE [Concomitant]
     Dosage: 1 DF: 1 CAPS TWICE/DAY MIFLASONE 200 MICRO G, POWDER IN CAPSULE FOR INHALATION
     Route: 055
  6. ACETAMINOPHEN [Concomitant]
     Dosage: 1 DF:1 TABS DOLIPRANE 1000 MG, TABLET
     Route: 048
  7. LYRICA [Suspect]
     Dosage: LYRICA 50MG CAPS 1 DF:1 CAPS LYRICA 50, 1 DOSAGE FORM DAILY FOR 3 DAYS AND 2 DAILY FOR 1 WEEK.
     Route: 048
     Dates: start: 20110103, end: 20110107
  8. EBASTINE [Concomitant]
     Dosage: 1 DF:1 TABS/IN MORNING KESTIN 10 MG, FILM-COATED TABLET
     Route: 048
  9. FORADIL [Concomitant]
     Dosage: 1 DF: 1 DOSE TWICE/DAY FORADIL 12 MICRO G/DOSE, SOLUTION FOR ORAL INHALATION AEROSOL
     Route: 055
     Dates: end: 20110107

REACTIONS (2)
  - HYPONATRAEMIA [None]
  - FALL [None]
